FAERS Safety Report 6554814-2 (Version None)
Quarter: 2010Q1

REPORT INFORMATION
  Report Type: 
  Country: None (occurrence: None)
  Receive Date: 20100127
  Receipt Date: 20100120
  Transmission Date: 20100710
  Serious: Yes (Hospitalization)
  Sender: FDA-Public Use
  Company Number: PW/030428/766

PATIENT
  Age: 25 Year
  Sex: Male

DRUGS (1)
  1. SUBUTEX [Suspect]
     Dosage: UNKNOWN DOSING DETAILS
     Route: 042
     Dates: end: 20020815

REACTIONS (5)
  - INCORRECT ROUTE OF DRUG ADMINISTRATION [None]
  - INFECTION [None]
  - INTERVERTEBRAL DISCITIS [None]
  - SPONDYLITIS [None]
  - SUBSTANCE ABUSE [None]
